FAERS Safety Report 22773611 (Version 7)
Quarter: 2024Q1

REPORT INFORMATION
  Report Type: Spontaneous
  Country: US (occurrence: US)
  Receive Date: 20230801
  Receipt Date: 20240305
  Transmission Date: 20240410
  Serious: Yes (Hospitalization, Other)
  Sender: FDA-Public Use
  Company Number: US-PFIZER INC-PV202300100293

PATIENT
  Age: 64 Year
  Sex: Female
  Weight: 63.492 kg

DRUGS (8)
  1. OXBRYTA [Suspect]
     Active Substance: VOXELOTOR
     Indication: Sickle cell anaemia
     Dosage: 3 TABLETS ONCE DAILY
     Route: 048
     Dates: start: 202306
  2. OXBRYTA [Suspect]
     Active Substance: VOXELOTOR
     Dosage: 2 TABLETS DAILY
     Route: 048
     Dates: start: 2023
  3. OXBRYTA [Suspect]
     Active Substance: VOXELOTOR
     Dosage: 1 TABLET THREE TIMES A DAY
     Route: 048
     Dates: start: 2023
  4. OXBRYTA [Suspect]
     Active Substance: VOXELOTOR
     Dosage: 500MG/ 3TABLETS ONCE DAILY
     Route: 048
     Dates: start: 2023
  5. OXBRYTA [Suspect]
     Active Substance: VOXELOTOR
     Dosage: 1500 MG, 1X/DAY
     Route: 048
  6. OXBRYTA [Suspect]
     Active Substance: VOXELOTOR
     Dosage: 500MG/3 TABLETS
     Route: 048
  7. FOLIC ACID [Concomitant]
     Active Substance: FOLIC ACID
     Dosage: UNK
  8. LOSARTAN [Concomitant]
     Active Substance: LOSARTAN
     Dosage: UNK

REACTIONS (5)
  - Constipation [Not Recovered/Not Resolved]
  - Limb operation [Unknown]
  - Abdominal discomfort [Unknown]
  - Aphonia [Not Recovered/Not Resolved]
  - Inappropriate schedule of product administration [Unknown]

NARRATIVE: CASE EVENT DATE: 20230101
